FAERS Safety Report 15488220 (Version 2)
Quarter: 2019Q2

REPORT INFORMATION
  Report Type: Spontaneous
  Country: DE (occurrence: DE)
  Receive Date: 20181011
  Receipt Date: 20190404
  Transmission Date: 20190711
  Serious: Yes (Other)
  Sender: FDA-Public Use
  Company Number: DE-MYLANLABS-2018M1075484

PATIENT
  Age: 13 Year
  Sex: Female
  Weight: 37.1 kg

DRUGS (7)
  1. RIBAVIRIN. [Suspect]
     Active Substance: RIBAVIRIN
     Dosage: 75 MG, UNK
     Route: 065
  2. RIBAVIRIN. [Suspect]
     Active Substance: RIBAVIRIN
     Dosage: DOSE: 2 X 200 MG = 10 MG/KG OF BODY WEIGHT PER DAY.
     Route: 065
  3. RIBAVIRIN. [Suspect]
     Active Substance: RIBAVIRIN
     Dosage: DOSE: REDUCED DOSE OF 200 MG DAILY (5 MG/KG) AFTER 10 WEEKS
     Route: 065
  4. TACROLIMUS. [Suspect]
     Active Substance: TACROLIMUS
     Indication: PROPHYLAXIS AGAINST TRANSPLANT REJECTION
     Dosage: UNK
     Route: 065
  5. RIBAVIRIN. [Suspect]
     Active Substance: RIBAVIRIN
     Dosage: 25 MG, UNK
     Route: 065
  6. RIBAVIRIN. [Suspect]
     Active Substance: RIBAVIRIN
     Indication: HEPATITIS E
     Dosage: 50 MG, UNK
     Route: 065
  7. MYCOPHENOLATE MOFETIL. [Suspect]
     Active Substance: MYCOPHENOLATE MOFETIL
     Indication: PROPHYLAXIS AGAINST TRANSPLANT REJECTION
     Dosage: UNK MILLIGRAM
     Route: 065

REACTIONS (4)
  - Off label use [Unknown]
  - Aplastic anaemia [Not Recovered/Not Resolved]
  - Intentional product use issue [Unknown]
  - Hepatitis E [Not Recovered/Not Resolved]
